FAERS Safety Report 19281402 (Version 32)
Quarter: 2022Q4

REPORT INFORMATION
  Report Type: Report from Study
  Country: US (occurrence: US)
  Receive Date: 20210520
  Receipt Date: 20221223
  Transmission Date: 20230113
  Serious: Yes (Other)
  Sender: FDA-Public Use
  Company Number: US-GLAXOSMITHKLINE-US2021AMR011835

PATIENT

DRUGS (1)
  1. BELANTAMAB MAFODOTIN [Suspect]
     Active Substance: BELANTAMAB MAFODOTIN
     Indication: Plasma cell myeloma
     Dosage: UNK
     Dates: start: 20201120, end: 20221018

REACTIONS (9)
  - Punctate keratitis [Unknown]
  - Cornea verticillata [Unknown]
  - Keratopathy [Not Recovered/Not Resolved]
  - Visual acuity reduced [Not Recovered/Not Resolved]
  - Eye disorder [Not Recovered/Not Resolved]
  - Night blindness [Not Recovered/Not Resolved]
  - Dry eye [Not Recovered/Not Resolved]
  - Foreign body sensation in eyes [Unknown]
  - Corneal disorder [Not Recovered/Not Resolved]

NARRATIVE: CASE EVENT DATE: 20210113
